FAERS Safety Report 19894790 (Version 1)
Quarter: 2021Q3

REPORT INFORMATION
  Report Type: Spontaneous
  Country: US (occurrence: US)
  Receive Date: 20210929
  Receipt Date: 20210929
  Transmission Date: 20211014
  Serious: No
  Sender: FDA-Public Use
  Company Number: US-CELLTRION INC.-2021US008782

PATIENT

DRUGS (2)
  1. INFLECTRA [Suspect]
     Active Substance: INFLIXIMAB-DYYB
     Dosage: 540MG IV INFUSION, 6 VIALS WERE MIXED
     Route: 042
     Dates: start: 20210306
  2. INFLECTRA [Suspect]
     Active Substance: INFLIXIMAB-DYYB
     Indication: COLITIS ULCERATIVE
     Dosage: 600 MG

REACTIONS (3)
  - Living in residential institution [Unknown]
  - Intentional dose omission [Unknown]
  - Treatment delayed [Unknown]
